FAERS Safety Report 13471343 (Version 1)
Quarter: 2017Q2

REPORT INFORMATION
  Report Type: Spontaneous
  Country: JP (occurrence: JP)
  Receive Date: 20170424
  Receipt Date: 20170424
  Transmission Date: 20170830
  Serious: Yes (Other)
  Sender: FDA-Public Use
  Company Number: JP-ROCHE-1924230

PATIENT
  Sex: Female

DRUGS (2)
  1. BENET [Concomitant]
     Active Substance: RISEDRONATE SODIUM
     Dosage: DOSAGE IS UNCERTAIN.
     Route: 048
  2. BONVIVA [Suspect]
     Active Substance: IBANDRONATE SODIUM
     Indication: PRODUCT USED FOR UNKNOWN INDICATION
     Dosage: DOSAGE IS UNCERTAIN.
     Route: 042
     Dates: start: 201608, end: 201608

REACTIONS (3)
  - Spinal compression fracture [Unknown]
  - Pain [Unknown]
  - Alopecia [Unknown]

NARRATIVE: CASE EVENT DATE: 201608
